FAERS Safety Report 9526644 (Version 2)
Quarter: 2013Q3

REPORT INFORMATION
  Report Type: Report from Study
  Country: US (occurrence: US)
  Receive Date: 20130916
  Receipt Date: 20130920
  Transmission Date: 20140515
  Serious: Yes (Other)
  Sender: FDA-Public Use
  Company Number: US-BAYER-2013-111611

PATIENT
  Age: 76 Year
  Sex: Male

DRUGS (3)
  1. NEXAVAR [Suspect]
     Indication: HEPATIC CANCER
     Dosage: 200 MG, BID
     Route: 048
     Dates: start: 20130908, end: 201309
  2. NEXAVAR [Suspect]
     Indication: HEPATIC CANCER
     Dosage: 200 MG, BID
     Route: 048
     Dates: start: 20130913
  3. EXLAX NOVA [Concomitant]

REACTIONS (14)
  - Aphagia [None]
  - Diarrhoea [None]
  - Constipation [None]
  - Abdominal distension [None]
  - Asthenia [Not Recovered/Not Resolved]
  - Nausea [Not Recovered/Not Resolved]
  - Feeling abnormal [None]
  - Pollakiuria [None]
  - Dysuria [None]
  - Dysphonia [None]
  - Dyspnoea [None]
  - Pain in extremity [Not Recovered/Not Resolved]
  - Decreased appetite [None]
  - Abdominal pain [Not Recovered/Not Resolved]
